FAERS Safety Report 4621619-9 (Version None)
Quarter: 2005Q1

REPORT INFORMATION
  Report Type: 
  Country: None (occurrence: None)
  Receive Date: 20050329
  Receipt Date: 20050315
  Transmission Date: 20050727
  Serious: Yes (Disabling, Other)
  Sender: FDA-Public Use
  Company Number: 2005045376

PATIENT
  Sex: Male

DRUGS (1)
  1. STREPTOMYCIN SULFATE [Suspect]
     Indication: ILL-DEFINED DISORDER

REACTIONS (1)
  - MENIERE'S DISEASE [None]
